FAERS Safety Report 7348249-2 (Version None)
Quarter: 2011Q1

REPORT INFORMATION
  Report Type: 
  Country: None (occurrence: None)
  Receive Date: 20110311
  Receipt Date: 20110303
  Transmission Date: 20110831
  Serious: Yes (Death)
  Sender: FDA-Public Use
  Company Number: CH-NOVOPROD-324482

PATIENT
  Age: 5 Day
  Sex: Female
  Weight: 2.73 kg

DRUGS (2)
  1. NOVOSEVEN [Suspect]
     Indication: HAEMATOMA
  2. NOVOSEVEN [Suspect]
     Indication: HAEMORRHAGE
     Dosage: 2 X 250 MCG IN TOTAL, INTRAVENOUS BOLUS
     Route: 042
     Dates: start: 20070501, end: 20070501

REACTIONS (1)
  - CEREBRAL ISCHAEMIA [None]
